FAERS Safety Report 26016517 (Version 1)
Quarter: 2025Q4

REPORT INFORMATION
  Report Type: Spontaneous
  Country: US (occurrence: US)
  Receive Date: 20251110
  Receipt Date: 20251110
  Transmission Date: 20260118
  Serious: Yes (Death)
  Sender: NOVARTIS
  Company Number: US-002147023-NVSC2025US171665

PATIENT
  Age: 72 Year
  Sex: Female
  Weight: 46 kg

DRUGS (25)
  1. CLOFAZIMINE [Suspect]
     Active Substance: CLOFAZIMINE
     Indication: Mycobacterium avium complex infection
     Dosage: 100 MG, QD
     Route: 048
     Dates: start: 20221010, end: 20250803
  2. ACETYLCYSTEINE [Concomitant]
     Active Substance: ACETYLCYSTEINE
     Indication: Product used for unknown indication
     Dosage: 500 MG (MISC)
     Route: 065
  3. ASCORBIC ACID [Concomitant]
     Active Substance: ASCORBIC ACID
     Indication: Product used for unknown indication
     Dosage: 1000 MG, QD (BY MOUTH)
     Route: 048
  4. ASPIRIN [Concomitant]
     Active Substance: ASPIRIN
     Indication: Product used for unknown indication
     Dosage: 81 MG, QD (BY MOUTH) (DELAYED RELEASE (DR/EC))
     Route: 048
  5. ZITHROMAX [Concomitant]
     Active Substance: AZITHROMYCIN DIHYDRATE
     Indication: Bacterial infection
     Dosage: 1 DOSAGE FORM, QD (90 TABLETS)
     Route: 048
  6. CALCIUM CITRATE [Concomitant]
     Active Substance: CALCIUM CITRATE
     Indication: Product used for unknown indication
     Dosage: 650 MG (BY MOUTH)
     Route: 048
  7. CHOLECALCIFEROL [Concomitant]
     Active Substance: CHOLECALCIFEROL
     Indication: Product used for unknown indication
     Dosage: UNK, QD (DOSE: 5,000 UNITS) (BY MOUTH)
     Route: 048
  8. GUAIFENESIN [Concomitant]
     Active Substance: GUAIFENESIN
     Indication: Product used for unknown indication
     Dosage: 5 ML, BIW (BY MOUTH AS NEEDED)
     Route: 048
  9. COENZYME Q10 [Concomitant]
     Active Substance: DIETARY SUPPLEMENT\UBIDECARENONE
     Indication: Product used for unknown indication
     Dosage: 300 MG, QD (STRENGTH: Q10 10 MG, BY MOUTH)
     Route: 048
  10. CREATINE [Concomitant]
     Active Substance: CREATINE
     Indication: Product used for unknown indication
     Dosage: UNK ((BULK) 100% MISCELLANEOUS (MISC) POWDER USE)
     Route: 065
  11. MYAMBUTOL [Concomitant]
     Active Substance: ETHAMBUTOL HYDROCHLORIDE
     Indication: Bacterial infection
     Dosage: 2 DOSAGE FORM, QD (BY MOUTH) (60 TABLET, REFILL: 2 (TWO)
     Route: 048
  12. GLUTATHIONE [Concomitant]
     Active Substance: GLUTATHIONE
     Indication: Product used for unknown indication
     Dosage: UNK (MISC, APPLY TO SKIN)
     Route: 065
  13. Hyper [Concomitant]
     Indication: Product used for unknown indication
     Dosage: 4 ML, BID (HYPER-SAL 7% INHALATION SOLUTION FOR NEBULIZATION)
     Route: 055
  14. CLOFAZIMINE [Concomitant]
     Active Substance: CLOFAZIMINE
     Indication: Product used for unknown indication
     Dosage: 100 MG, QD (BY MOUTH)
     Route: 048
  15. Jarro Dophilus [Concomitant]
     Indication: Product used for unknown indication
     Dosage: UNK (LACTOBAC NO.33/B.LACTIS, LONGUM) (BY MOUTH)
     Route: 048
  16. LATANOPROST [Concomitant]
     Active Substance: LATANOPROST
     Indication: Product used for unknown indication
     Dosage: 1 DRP, QD (INSTILL 1 DROP IN BOTH EYES IN THE EVENING)
     Route: 047
  17. LEVALBUTEROL [Concomitant]
     Active Substance: LEVALBUTEROL
     Indication: Product used for unknown indication
     Dosage: UNK, Q6H (45 MCG/ACTUATION INHALATION HFA AEROSOL INHALER) (INHALE 1-2 PUFFS BY MOUTH EVERY SIX HOUR
     Route: 055
  18. LEVOTHYROXINE [Concomitant]
     Active Substance: LEVOTHYROXINE
     Indication: Product used for unknown indication
     Dosage: 75 UG, QD (BY MOUTH)
     Route: 048
  19. MAGNESIUM CITRATE [Concomitant]
     Active Substance: MAGNESIUM CITRATE
     Indication: Product used for unknown indication
     Dosage: 2 DOSAGE FORM, QD (BY MOUTH)
     Route: 048
  20. DIETARY SUPPLEMENT\HERBALS\MILK THISTLE [Concomitant]
     Active Substance: MILK THISTLE
     Indication: Product used for unknown indication
     Dosage: 375 MG, QD (BY MOUTH)
     Route: 048
  21. ONDANSETRON [Concomitant]
     Active Substance: ONDANSETRON
     Indication: Product used for unknown indication
     Dosage: UNK (DISINTEGRATING, DISSOLVE 4 MG ON TONGUE AND SWALLOW NULL)
     Route: 048
  22. RIFABUTIN [Concomitant]
     Active Substance: RIFABUTIN
     Indication: Product used for unknown indication
     Dosage: 150 MG, QD (BY MOUTH)
     Route: 048
  23. ROSUVASTATIN [Concomitant]
     Active Substance: ROSUVASTATIN
     Indication: Product used for unknown indication
     Dosage: 5 MG, QD (BY MOUTH)
     Route: 048
  24. SACCHAROMYCES CEREVISIAE [Concomitant]
     Active Substance: SACCHAROMYCES CEREVISIAE
     Indication: Product used for unknown indication
     Dosage: 250 MG, BID (BY MOUTH)
     Route: 048
  25. HERBALS\TURMERIC [Concomitant]
     Active Substance: HERBALS\TURMERIC
     Indication: Product used for unknown indication
     Dosage: 1500 MG, QD (BY MOUTH)
     Route: 048

REACTIONS (3)
  - Depression [Fatal]
  - Completed suicide [Fatal]
  - Off label use [Unknown]

NARRATIVE: CASE EVENT DATE: 20251004
